FAERS Safety Report 8108198-9 (Version None)
Quarter: 2012Q1

REPORT INFORMATION
  Report Type: 
  Country: None (occurrence: None)
  Receive Date: 20120202
  Receipt Date: 20120118
  Transmission Date: 20120608
  Serious: Yes (Other)
  Sender: FDA-Public Use
  Company Number: CA-JNJFOC-20111205300

PATIENT
  Sex: Male
  Weight: 78.7 kg

DRUGS (1)
  1. REMICADE [Suspect]
     Indication: CROHN'S DISEASE
     Dosage: WEEK 2.
     Route: 042
     Dates: start: 20111124, end: 20120118

REACTIONS (6)
  - JOINT LOCK [None]
  - ADVERSE DRUG REACTION [None]
  - PRURITUS [None]
  - HEADACHE [None]
  - JOINT STIFFNESS [None]
  - ARTHRALGIA [None]
